FAERS Safety Report 4433158-9 (Version None)
Quarter: 2004Q3

REPORT INFORMATION
  Report Type: 
  Country: None (occurrence: None)
  Receive Date: 20040823
  Receipt Date: 20040805
  Transmission Date: 20050211
  Serious: Yes (Other)
  Sender: FDA-Public Use
  Company Number: 201799

PATIENT
  Age: 41 Year
  Sex: Female
  Weight: 79.3795 kg

DRUGS (3)
  1. AVONEX [Suspect]
     Indication: MULTIPLE SCLEROSIS
     Dosage: 30 MCG QW IM
     Route: 030
     Dates: start: 20030701, end: 20030801
  2. AVONEX [Suspect]
     Indication: MULTIPLE SCLEROSIS
     Dosage: 30 MCG QW IM
     Route: 030
     Dates: start: 20030801
  3. METHAMPHETAMINE HCL [Concomitant]

REACTIONS (10)
  - CHEST PAIN [None]
  - DEPRESSION [None]
  - DISEASE RECURRENCE [None]
  - JAUNDICE [None]
  - JOINT SWELLING [None]
  - OCULAR ICTERUS [None]
  - OEDEMA PERIPHERAL [None]
  - POLLAKIURIA [None]
  - SINUSITIS [None]
  - WEIGHT INCREASED [None]
